FAERS Safety Report 6520212-0 (Version None)
Quarter: 2009Q4

REPORT INFORMATION
  Report Type: 
  Country: None (occurrence: None)
  Receive Date: 20091229
  Receipt Date: 20091216
  Transmission Date: 20100525
  Serious: Yes (Hospitalization)
  Sender: FDA-Public Use
  Company Number: PHHY2009FR45093

PATIENT
  Sex: Male
  Weight: 100 kg

DRUGS (12)
  1. TASIGNA [Suspect]
     Indication: CHRONIC MYELOID LEUKAEMIA
     Dosage: 400 MG, BID
     Route: 048
     Dates: start: 20080424
  2. DILTIAZEM [Concomitant]
     Indication: HYPERTENSION
     Dosage: 300 MG DAILY
  3. TAREG [Concomitant]
     Indication: HYPERTENSION
     Dosage: 1 DF DAILY
  4. BISOPROLOL FUMARATE [Concomitant]
     Indication: HYPERTENSION
     Dosage: 0.5 DF DAILY
  5. LASILIX [Concomitant]
     Dosage: 40 MG QD
  6. ENALAPRIL [Concomitant]
     Dosage: 20 MG, QD
  7. SIMVASTATIN [Concomitant]
     Indication: HYPERCHOLESTEROLAEMIA
     Dosage: 20 MG, QD
  8. ESIDRIX [Concomitant]
     Indication: HYPERTENSION
     Dosage: 20 MG, QD
  9. KARDEGIC [Concomitant]
     Dosage: 160 MG, QD
  10. GLUCOPHAGE [Concomitant]
     Indication: TYPE 2 DIABETES MELLITUS
     Dosage: 1 DF, BID
  11. BYETTA [Concomitant]
     Indication: TYPE 2 DIABETES MELLITUS
     Dosage: 10 UG, BID
  12. DIAMICRON [Concomitant]
     Indication: TYPE 2 DIABETES MELLITUS
     Dosage: 30 MG, BID

REACTIONS (5)
  - BACK PAIN [None]
  - DECREASED APPETITE [None]
  - NAUSEA [None]
  - NEOPLASM MALIGNANT [None]
  - RENAL CANCER [None]
